FAERS Safety Report 4526473-1 (Version None)
Quarter: 2004Q4

REPORT INFORMATION
  Report Type: 
  Country: None (occurrence: None)
  Receive Date: 20041210
  Receipt Date: 20041201
  Transmission Date: 20050328
  Serious: Yes (Death, Hospitalization)
  Sender: FDA-Public Use
  Company Number: F01200403507

PATIENT
  Age: 78 Year
  Sex: Male

DRUGS (9)
  1. OXALIPLATIN - SOLUTION - 236 MG [Suspect]
     Indication: COLORECTAL CANCER METASTATIC
     Dosage: 236 MG Q3W INTRAVENOUS NOS
     Route: 042
     Dates: start: 20041012, end: 20041012
  2. CAPECITABINE - TABLET - 1800 MG [Suspect]
     Dosage: 1800 MG BID ORAL
     Route: 048
     Dates: start: 20041012, end: 20041026
  3. BEVACIZUMAB OR PLACEBO - SOLUTION [Suspect]
     Dosage: INTRAVENOUS NOS
     Route: 042
     Dates: start: 20041012, end: 20041012
  4. ACETYLSALICYLIC ACID SRT [Concomitant]
  5. ALTACE (RAMIPRIL) [Concomitant]
  6. LOVASTATIN [Concomitant]
  7. IMODIUM [Concomitant]
  8. VITAMIN B-12 [Concomitant]
  9. TYLENOL (ACETOMINOPHEN, CAFFEINE, CODEINE PHOSPHATE) [Concomitant]

REACTIONS (12)
  - ASTHENIA [None]
  - ATRIAL FIBRILLATION [None]
  - BLOOD CREATININE INCREASED [None]
  - BLOOD UREA INCREASED [None]
  - CARDIAC ARREST [None]
  - DEHYDRATION [None]
  - DIARRHOEA [None]
  - DYSPNOEA [None]
  - NEUTROPHIL COUNT DECREASED [None]
  - SEPSIS [None]
  - SINUS TACHYCARDIA [None]
  - WHITE BLOOD CELL COUNT DECREASED [None]
